FAERS Safety Report 20754596 (Version 1)
Quarter: 2022Q2

REPORT INFORMATION
  Report Type: Spontaneous
  Country: NL (occurrence: NL)
  Receive Date: 20220426
  Receipt Date: 20220426
  Transmission Date: 20220721
  Serious: Yes (Other)
  Sender: FDA-Public Use
  Company Number: NL-LRB-00801905

PATIENT
  Sex: Female

DRUGS (4)
  1. ROSUVASTATIN [Suspect]
     Active Substance: ROSUVASTATIN
     Indication: Coronary artery disease
     Dosage: 10 MILLIGRAM, DAILY, 1D1T
     Route: 065
     Dates: start: 20210928, end: 20220201
  2. EZETIMIBE [Suspect]
     Active Substance: EZETIMIBE
     Indication: Coronary artery disease
     Dosage: 1D1T
     Route: 065
     Dates: start: 20210928, end: 20220201
  3. PANTOPRAZOLE TABLET MSR 40MG / Brand name not specified PANTOPRAZOLE T [Concomitant]
     Indication: Product used for unknown indication
     Dosage: GASTRO-RESISTANT TABLET, 40 MG (MILLIGRAMS) ()
     Route: 065
  4. ACETYLSALICYLIC ACID TABLET 80MG / Brand name not specified ACETYLSALI [Concomitant]
     Indication: Product used for unknown indication
     Dosage: TABLET, 80 MG (MILLIGRAM) ()
     Route: 065

REACTIONS (2)
  - Fatigue [Recovered/Resolved]
  - Dyspnoea [Recovered/Resolved]
